FAERS Safety Report 4850689-8 (Version None)
Quarter: 2005Q4

REPORT INFORMATION
  Report Type: 
  Country: None (occurrence: None)
  Receive Date: 20051208
  Receipt Date: 20051208
  Transmission Date: 20060501
  Serious: Yes (Other)
  Sender: FDA-Public Use
  Company Number: None

PATIENT
  Age: 34 Year
  Sex: Female

DRUGS (1)
  1. BOTOX  100 UNIT VIAL ALLERGAN [Suspect]
     Dosage: 44 UNITS ONCE ID  ONE TREATMENT
     Route: 023

REACTIONS (10)
  - ANXIETY [None]
  - BURNING SENSATION [None]
  - FEELING ABNORMAL [None]
  - FEELING HOT [None]
  - INJECTION SITE REACTION [None]
  - MALAISE [None]
  - NAUSEA [None]
  - NECK PAIN [None]
  - POST PROCEDURAL COMPLICATION [None]
  - SKIN TIGHTNESS [None]
